FAERS Safety Report 7672996-6 (Version None)
Quarter: 2011Q3

REPORT INFORMATION
  Report Type: 
  Country: None (occurrence: None)
  Receive Date: 20110809
  Receipt Date: 20110801
  Transmission Date: 20111222
  Serious: Yes (Hospitalization, Other)
  Sender: FDA-Public Use
  Company Number: US-ASTRAZENECA-2010SE32294

PATIENT
  Age: 78 Year
  Sex: Female
  Weight: 71.2 kg

DRUGS (190)
  1. ACCOLATE [Suspect]
     Route: 048
     Dates: start: 20081024, end: 20090203
  2. ACCOLATE [Suspect]
     Route: 048
     Dates: start: 20100916
  3. FUROSEMIDE [Concomitant]
     Route: 048
     Dates: start: 20080710, end: 20090203
  4. EXFORGE [Concomitant]
     Dosage: 5/60 MG ONCE  A DAY
     Route: 048
     Dates: start: 20080724, end: 20090203
  5. ISOSORBIDE MONONITRATE [Concomitant]
     Route: 048
     Dates: start: 20081204, end: 20090416
  6. ISOSORBIDE MONONITRATE [Concomitant]
     Route: 048
     Dates: start: 20090302, end: 20091005
  7. PRAVACHOL [Concomitant]
     Route: 048
     Dates: start: 20081009, end: 20090203
  8. PROPOXYPHENE-ACETAMIN NAPSYLATE [Concomitant]
     Route: 048
     Dates: start: 20090921, end: 20091123
  9. HYZAAR [Concomitant]
     Dosage: 12.5/50 MG ONCE A ADY
     Route: 048
     Dates: start: 20080724, end: 20080724
  10. LORAZEPAM [Concomitant]
     Dosage: ONE-TWO TABLETS EVERY DAY AS NEEDED
     Route: 048
     Dates: start: 20081010, end: 20081103
  11. LORAZEPAM [Concomitant]
     Dosage: ONE-TWO TABLETS EVERY DAY AS NEEDED
     Route: 048
     Dates: start: 20081204, end: 20090804
  12. LORAZEPAM [Concomitant]
     Dosage: 1-2 TABLETS ONCE A DAY AS NEEDED
     Route: 048
     Dates: start: 20090522, end: 20090804
  13. LORAZEPAM [Concomitant]
     Dosage: 1-2 TABLETS ONCE A DAY AS NEEDED
     Route: 048
     Dates: start: 20090702, end: 20100814
  14. LORAZEPAM [Concomitant]
     Dosage: ONE-TWO TABLETS EVERY DAY
     Route: 048
     Dates: start: 20090814, end: 20090921
  15. LORAZEPAM [Concomitant]
     Dosage: 1-2 TABLETS ONCE A DAY AS NEEDED
     Route: 048
     Dates: start: 20090921, end: 20091111
  16. LORAZEPAM [Concomitant]
     Dosage: 1-2 TABLETS ONCE A DAY AS NEEDED
     Route: 048
     Dates: start: 20100409, end: 20100427
  17. AMITRIPTYLINE HCL [Concomitant]
     Route: 048
     Dates: start: 20090504, end: 20090804
  18. POTASSIUM CHLORIDE [Concomitant]
     Route: 048
     Dates: start: 20091005, end: 20100224
  19. DARVOCET-N 50 [Concomitant]
     Dosage: ONE TABLET FOUR TO SIX HOURS
     Route: 048
     Dates: start: 20090325, end: 20090417
  20. DARVOCET-N 50 [Concomitant]
     Route: 048
     Dates: start: 20101020
  21. ALBUTEROL SULFATE AUTOHALER [Concomitant]
     Indication: WHEEZING
     Dosage: EVERY FOUR OR SIX HOURS
     Dates: start: 20090416, end: 20090901
  22. CELEXA [Concomitant]
     Route: 048
     Dates: start: 20101120
  23. TESSALON [Concomitant]
     Indication: COUGH
     Route: 048
     Dates: start: 20091005, end: 20091021
  24. TESSALON [Concomitant]
     Route: 048
     Dates: start: 20091123, end: 20091207
  25. BACTROBAN [Concomitant]
     Route: 061
  26. ACCOLATE [Suspect]
     Route: 048
     Dates: start: 20080724, end: 20081024
  27. ACCOLATE [Suspect]
     Route: 048
     Dates: start: 20081024, end: 20090203
  28. ACCOLATE [Suspect]
     Route: 048
     Dates: start: 20091005, end: 20091123
  29. ACCOLATE [Suspect]
     Route: 048
     Dates: start: 20100916
  30. OMEPRAZOLE [Concomitant]
     Route: 048
     Dates: start: 20091110, end: 20100310
  31. FUROSEMIDE [Concomitant]
     Route: 048
     Dates: start: 20080724, end: 20090203
  32. FUROSEMIDE [Concomitant]
     Route: 048
     Dates: start: 20090203, end: 20090313
  33. FUROSEMIDE [Concomitant]
     Route: 048
     Dates: start: 20090313, end: 20090804
  34. FUROSEMIDE [Concomitant]
     Route: 048
     Dates: start: 20100329, end: 20100618
  35. ISOSORBIDE MONONITRATE [Concomitant]
     Route: 048
     Dates: start: 20080724, end: 20080724
  36. PRAVACHOL [Concomitant]
     Route: 048
     Dates: start: 20080724, end: 20081009
  37. PROPOXYPHENE-ACETAMIN NAPSYLATE [Concomitant]
     Route: 048
     Dates: start: 20080912, end: 20081103
  38. PROPOXYPHENE-ACETAMIN NAPSYLATE [Concomitant]
     Route: 048
     Dates: start: 20090804, end: 20090804
  39. LORAZEPAM [Concomitant]
     Dosage: ONE-TWO TABLETS EVERY DAY
     Route: 048
     Dates: start: 20081103, end: 20081204
  40. LORAZEPAM [Concomitant]
     Dosage: 1-2 TABLETS ONCE A DAY
     Route: 048
     Dates: start: 20090522, end: 20090804
  41. LORAZEPAM [Concomitant]
     Dosage: ONE-TWO TABLETS EVERY DAY
     Route: 048
     Dates: start: 20100104, end: 20100310
  42. LORAZEPAM [Concomitant]
     Dosage: 1-2 TABLETS ONCE A DAY AS NEEDED
     Route: 048
     Dates: start: 20100104, end: 20100310
  43. AMITRIPTYLINE HCL [Concomitant]
     Route: 048
     Dates: start: 20091005, end: 20100210
  44. POTASSIUM CHLORIDE [Concomitant]
     Route: 048
     Dates: start: 20080903, end: 20081018
  45. ALUPENT [Concomitant]
     Dates: start: 20101117
  46. PNEUMOVAX 23 [Concomitant]
     Dosage: ONE SOLUTION
     Dates: start: 20081016, end: 20090302
  47. DARVOCET-N 50 [Concomitant]
     Dosage: ONE TABLET FOUR TO SIX HOURS
     Route: 048
     Dates: start: 20090602, end: 20090804
  48. DARVOCET-N 50 [Concomitant]
     Route: 048
     Dates: start: 20090602, end: 20090804
  49. DARVOCET-N 50 [Concomitant]
     Route: 048
     Dates: start: 20100706, end: 20100903
  50. IPRATROPIUM BROMIDE [Concomitant]
     Route: 055
     Dates: start: 20090203, end: 20090804
  51. XOPENEX HFA [Concomitant]
     Dosage: 1.25/0.5 MG/ML EVERY FOUR HOURS
     Dates: start: 20090224, end: 20090804
  52. CELEXA [Concomitant]
     Route: 048
     Dates: start: 20090813, end: 20091109
  53. DOXYCYCLINE HYCLATE [Concomitant]
     Route: 048
     Dates: start: 20091123, end: 20091207
  54. LEVOTHYROXINE SODIUM [Concomitant]
     Route: 048
     Dates: start: 20100901
  55. ACCOLATE [Suspect]
     Route: 048
     Dates: start: 20091021, end: 20091110
  56. IMDUR [Concomitant]
     Route: 048
     Dates: start: 20100205, end: 20100802
  57. FUROSEMIDE [Concomitant]
     Route: 048
     Dates: start: 20090804, end: 20100329
  58. PROPOXYPHENE-ACETAMIN NAPSYLATE [Concomitant]
     Indication: PAIN
     Route: 048
     Dates: start: 20080724, end: 20080808
  59. PROPOXYPHENE-ACETAMIN NAPSYLATE [Concomitant]
     Route: 048
     Dates: start: 20080912, end: 20081103
  60. PROPOXYPHENE-ACETAMIN NAPSYLATE [Concomitant]
     Route: 048
     Dates: start: 20081103, end: 20081216
  61. PROPOXYPHENE-ACETAMIN NAPSYLATE [Concomitant]
     Route: 048
     Dates: start: 20081216, end: 20090203
  62. PROPOXYPHENE-ACETAMIN NAPSYLATE [Concomitant]
     Route: 048
     Dates: start: 20090804, end: 20091005
  63. LORAZEPAM [Concomitant]
     Route: 048
     Dates: start: 20080724, end: 20080822
  64. LORAZEPAM [Concomitant]
     Route: 048
     Dates: start: 20080822, end: 20081010
  65. AMITRIPTYLINE HCL [Concomitant]
     Route: 048
     Dates: start: 20090504, end: 20090804
  66. AMITRIPTYLINE HCL [Concomitant]
     Route: 048
     Dates: start: 20090921, end: 20091005
  67. AMOXIL [Concomitant]
     Dosage: 4 DF AS ONE DOSE AS DIRECTED
     Route: 048
     Dates: start: 20101014
  68. AMOXICILLIN [Concomitant]
     Route: 048
     Dates: start: 20080806, end: 20090203
  69. AMOXICILLIN [Concomitant]
     Route: 048
     Dates: start: 20081103, end: 20090203
  70. AMOXICILLIN [Concomitant]
     Route: 048
     Dates: start: 20100126, end: 20100427
  71. ALBUTEROL SULFATE HF [Concomitant]
     Dosage: TWO PUFFS EVERY FOUR TO SIX HOURS
     Route: 055
     Dates: start: 20080820, end: 20091005
  72. ALUPENT [Concomitant]
     Dates: start: 20080920, end: 20081117
  73. ALUPENT [Concomitant]
     Dosage: AS NEEDED
     Dates: start: 20080920, end: 20081117
  74. DARVOCET-N 50 [Concomitant]
     Dosage: ONE TABLET FOUR TO SIX HOURS
     Route: 048
     Dates: start: 20090203, end: 20090325
  75. DARVOCET-N 50 [Concomitant]
     Route: 048
     Dates: start: 20090728, end: 20090804
  76. SINGULAIR [Concomitant]
     Route: 048
     Dates: start: 20090224, end: 20090804
  77. ZESTORETIC [Concomitant]
     Dosage: 12.5/20 MG DAILY
     Route: 048
     Dates: start: 20090317, end: 20090330
  78. TESSALON [Concomitant]
     Route: 048
     Dates: start: 20091021, end: 20091110
  79. ACCOLATE [Suspect]
     Indication: ASTHMA
     Route: 048
     Dates: start: 20080719, end: 20080724
  80. ACCOLATE [Suspect]
     Indication: CHRONIC OBSTRUCTIVE PULMONARY DISEASE
     Route: 048
     Dates: start: 20080719, end: 20080724
  81. ACCOLATE [Suspect]
     Route: 048
     Dates: start: 20091110, end: 20100916
  82. IMDUR [Concomitant]
     Route: 048
     Dates: start: 20091005, end: 20100205
  83. FLORA-Q [Concomitant]
     Route: 048
     Dates: start: 20080724, end: 20080724
  84. PROPOXYPHENE-ACETAMIN NAPSYLATE [Concomitant]
     Route: 048
     Dates: start: 20080808, end: 20080912
  85. LORAZEPAM [Concomitant]
     Dosage: ONE-TWO TABLETS EVERY DAY
     Route: 048
     Dates: start: 20091111, end: 20100104
  86. LORAZEPAM [Concomitant]
     Dosage: ONE-TWO TABLETS EVERY DAY
     Route: 048
     Dates: start: 20100427, end: 20100706
  87. LORAZEPAM [Concomitant]
     Dosage: 1-2 TABLETS ONCE A DAY AS NEEDED
     Route: 048
     Dates: start: 20100427, end: 20100706
  88. LORAZEPAM [Concomitant]
     Dosage: 1-2 TABLETS ONCE A DAY AS NEEDED
     Route: 048
     Dates: start: 20100706, end: 20100910
  89. LORAZEPAM [Concomitant]
     Dosage: 1-2 TABLETS ONCE A DAY
     Route: 048
     Dates: start: 20100910
  90. AMITRIPTYLINE HCL [Concomitant]
     Route: 048
     Dates: start: 20080724, end: 20080915
  91. AMITRIPTYLINE HCL [Concomitant]
     Route: 048
     Dates: start: 20090820, end: 20091005
  92. AMOXICILLIN [Concomitant]
     Route: 048
     Dates: start: 20100126, end: 20100427
  93. ALBUTEROL SULFATE HF [Concomitant]
     Dosage: AS NEEDED
     Route: 055
     Dates: start: 20090804, end: 20091005
  94. CELEXA [Concomitant]
     Route: 048
     Dates: start: 20090430, end: 20090804
  95. VITAMIN-MINERAL COMPOUND TAB [Concomitant]
     Dosage: ONCE A DAY
     Route: 048
     Dates: start: 20090804, end: 20100903
  96. TESSALON [Concomitant]
     Route: 048
     Dates: start: 20091110, end: 20091123
  97. TESSALON [Concomitant]
     Route: 048
     Dates: start: 20091123, end: 20101207
  98. ACCOLATE [Suspect]
     Route: 048
     Dates: start: 20080724, end: 20081024
  99. ACCOLATE [Suspect]
     Route: 048
     Dates: start: 20090409, end: 20091123
  100. ACCOLATE [Suspect]
     Route: 048
     Dates: start: 20091005, end: 20091123
  101. ACCOLATE [Suspect]
     Route: 048
     Dates: start: 20091110, end: 20100916
  102. IMDUR [Concomitant]
     Route: 048
     Dates: start: 20080724, end: 20080724
  103. IMDUR [Concomitant]
     Route: 048
     Dates: start: 20090831, end: 20091005
  104. OMEPRAZOLE [Concomitant]
     Route: 048
     Dates: start: 20090203, end: 20091123
  105. FUROSEMIDE [Concomitant]
     Route: 048
     Dates: start: 20100901
  106. EXFORGE [Concomitant]
     Dosage: 5/60 MG ONCE  A DAY
     Route: 048
     Dates: start: 20090313, end: 20090317
  107. ISOSORBIDE MONONITRATE [Concomitant]
     Route: 048
     Dates: start: 20080724, end: 20081008
  108. POTASSIUM CHLORIDE [Concomitant]
     Route: 048
     Dates: start: 20080724, end: 20090203
  109. LORAZEPAM [Concomitant]
     Dosage: ONE-TWO TABLETS EVERY DAY
     Route: 048
     Dates: start: 20081204, end: 20090804
  110. LORAZEPAM [Concomitant]
     Dosage: 1-2 TABLETS ONCE A DAY AS NEEDED
     Route: 048
     Dates: start: 20090914, end: 20090921
  111. LORAZEPAM [Concomitant]
     Dosage: ONE-TWO TABLETS EVERY DAY
     Route: 048
     Dates: start: 20090921, end: 20091111
  112. LORAZEPAM [Concomitant]
     Dosage: ONE-TWO TABLETS EVERY DAY
     Route: 048
     Dates: start: 20100310, end: 20100409
  113. LORAZEPAM [Concomitant]
     Dosage: 1-2 TABLETS ONCE A DAY AS NEEDED
     Route: 048
     Dates: start: 20100310, end: 20100409
  114. LORAZEPAM [Concomitant]
     Dosage: 1-2 TABLETS ONCE A DAY
     Route: 048
     Dates: start: 20100706, end: 20100910
  115. AMITRIPTYLINE HCL [Concomitant]
     Route: 048
     Dates: start: 20080915, end: 20081103
  116. AMITRIPTYLINE HCL [Concomitant]
     Route: 048
     Dates: start: 20090107, end: 20090804
  117. POTASSIUM CHLORIDE [Concomitant]
     Route: 048
     Dates: start: 20090112, end: 20090203
  118. POTASSIUM CHLORIDE [Concomitant]
     Route: 048
     Dates: start: 20090203, end: 20090309
  119. POTASSIUM CHLORIDE [Concomitant]
     Route: 048
     Dates: start: 20090804, end: 20091005
  120. POTASSIUM CHLORIDE [Concomitant]
     Route: 048
     Dates: start: 20091021, end: 20091123
  121. POTASSIUM CHLORIDE [Concomitant]
     Route: 048
     Dates: start: 20091110, end: 20100210
  122. DARVOCET-N 50 [Concomitant]
     Route: 048
     Dates: start: 20090417, end: 20090804
  123. XOPENEX HFA [Concomitant]
     Indication: BRONCHIAL HYPERREACTIVITY
     Dates: start: 20090203, end: 20090416
  124. SINGULAIR [Concomitant]
     Route: 048
     Dates: start: 20100427, end: 20100903
  125. ZESTORETIC [Concomitant]
     Dosage: 12.5/20 MG DAILY
     Route: 048
     Dates: start: 20090330, end: 20090804
  126. ALBUTEROL SULFATE AUTOHALER [Concomitant]
     Dosage: ONE VIAL EVERY FOUR HOURS
     Dates: start: 20100901
  127. PRAVASTATIN [Concomitant]
     Route: 048
     Dates: start: 20100507, end: 20100903
  128. DUONEB [Concomitant]
     Dosage: 2.5/0.5 MG/3 4 TIMES A DAY
     Dates: start: 20100209
  129. ACCOLATE [Suspect]
     Route: 048
     Dates: start: 20091021, end: 20091110
  130. IMDUR [Concomitant]
     Route: 048
     Dates: start: 20100802
  131. FUROSEMIDE [Concomitant]
     Route: 048
     Dates: start: 20100618, end: 20100901
  132. FUROSEMIDE [Concomitant]
     Route: 048
     Dates: start: 20100618, end: 20100618
  133. LORAZEPAM [Concomitant]
     Route: 048
     Dates: start: 20081010, end: 20081103
  134. LORAZEPAM [Concomitant]
     Dosage: 1-2 TABLETS ONCE A DAY AS NEEDED
     Route: 048
     Dates: start: 20100910
  135. AMITRIPTYLINE HCL [Concomitant]
     Route: 048
     Dates: start: 20091005, end: 20091123
  136. AMITRIPTYLINE HCL [Concomitant]
     Route: 048
     Dates: start: 20100210, end: 20100224
  137. AMOXIL [Concomitant]
     Route: 048
     Dates: start: 20080915, end: 20090203
  138. AMOXIL [Concomitant]
     Route: 048
     Dates: start: 20091110, end: 20091123
  139. AMOXICILLIN [Concomitant]
     Route: 048
     Dates: start: 20090429, end: 20090804
  140. ALBUTEROL SULFATE HF [Concomitant]
     Dosage: TWO PUFFS EVERY FOUR TO SIX HOURS
     Route: 055
     Dates: start: 20090804, end: 20091005
  141. ALUPENT [Concomitant]
     Dates: start: 20080905, end: 20080920
  142. DARVOCET-N 50 [Concomitant]
     Route: 048
     Dates: start: 20090325, end: 20090417
  143. DARVOCET-N 50 [Concomitant]
     Dosage: ONE TABLET FOUR TO SIX HOURS
     Route: 048
     Dates: start: 20090417, end: 20090804
  144. DICYCLOMINE [Concomitant]
     Route: 048
     Dates: start: 20091110, end: 20100706
  145. DICYCLOMINE [Concomitant]
     Route: 048
     Dates: start: 20100706, end: 20100927
  146. DUONEB [Concomitant]
     Dosage: 2.5/0.5 MG/3 4 TIMES A DAY
     Dates: start: 20090804, end: 20090804
  147. METHIMAZOLE [Concomitant]
     Route: 048
     Dates: start: 20091229, end: 20100903
  148. ACCOLATE [Suspect]
     Route: 048
     Dates: start: 20090409, end: 20091123
  149. OMEPRAZOLE [Concomitant]
     Route: 048
     Dates: start: 20100310
  150. FUROSEMIDE [Concomitant]
     Route: 048
     Dates: start: 20100329, end: 20100329
  151. ISOSORBIDE MONONITRATE [Concomitant]
     Route: 048
     Dates: start: 20081008, end: 20081204
  152. PROPOXYPHENE-ACETAMIN NAPSYLATE [Concomitant]
     Route: 048
     Dates: start: 20081103, end: 20081216
  153. HYZAAR [Concomitant]
     Dosage: 12.5/50 MG ONCE A ADY
     Route: 048
     Dates: start: 20090313, end: 20090317
  154. LORAZEPAM [Concomitant]
     Dosage: ONE-TWO TABLETS EVERY DAY AS NEEDED
     Route: 048
     Dates: start: 20080822, end: 20081010
  155. AMITRIPTYLINE HCL [Concomitant]
     Route: 048
     Dates: start: 20100224, end: 20100901
  156. AMOXIL [Concomitant]
     Route: 048
     Dates: start: 20080805, end: 20090203
  157. AMOXIL [Concomitant]
     Dosage: 4 DF AS ONE DOSE AS DIRECTED
     Route: 048
     Dates: start: 20090522, end: 20090804
  158. AMOXICILLIN [Concomitant]
     Dosage: 4 DF PRIOR TO  DENTAL PROCEDURE
     Route: 048
     Dates: start: 20090429, end: 20090804
  159. POTASSIUM CHLORIDE [Concomitant]
     Route: 048
     Dates: start: 20081018, end: 20090203
  160. POTASSIUM CHLORIDE [Concomitant]
     Route: 048
     Dates: start: 20090309, end: 20090804
  161. CIPROFLAXACIN [Concomitant]
     Route: 048
     Dates: start: 20081219, end: 20090203
  162. DARVOCET-N 50 [Concomitant]
     Indication: PAIN
     Route: 048
     Dates: start: 20090203, end: 20090325
  163. DARVOCET-N 50 [Concomitant]
     Route: 048
     Dates: start: 20100706, end: 20100903
  164. DICYCLOMINE [Concomitant]
     Route: 048
     Dates: start: 20090203, end: 20090804
  165. CELEXA [Concomitant]
     Dosage: TAKE AFTER DINNER
     Route: 048
     Dates: start: 20090813, end: 20091109
  166. CELEXA [Concomitant]
     Route: 048
     Dates: start: 20091109, end: 20091110
  167. TESSALON [Concomitant]
     Route: 048
     Dates: start: 20091005, end: 20091021
  168. TESSALON [Concomitant]
     Route: 048
     Dates: start: 20091021, end: 20091110
  169. TESSALON [Concomitant]
     Route: 048
     Dates: start: 20091110, end: 20091123
  170. DOXYCYCLINE HYCLATE [Concomitant]
     Route: 048
     Dates: start: 20091216, end: 20100427
  171. ISOSORBIDE MONONITRATE [Concomitant]
     Route: 048
     Dates: start: 20090302, end: 20091005
  172. PROPOXYPHENE-ACETAMIN NAPSYLATE [Concomitant]
     Route: 048
     Dates: start: 20081216, end: 20090203
  173. PROPOXYPHENE-ACETAMIN NAPSYLATE [Concomitant]
     Route: 048
     Dates: start: 20091005, end: 20100224
  174. PROPOXYPHENE-ACETAMIN NAPSYLATE [Concomitant]
     Route: 048
     Dates: start: 20100224, end: 20100427
  175. PROPOXYPHENE-ACETAMIN NAPSYLATE [Concomitant]
     Dosage: 650/100 MG TWO TIMES A DAY
     Route: 048
     Dates: start: 20100427
  176. LORAZEPAM [Concomitant]
     Dosage: ONE-TWO TABLETS EVERY DAY AS NEEDED
     Route: 048
     Dates: start: 20081103, end: 20081204
  177. LORAZEPAM [Concomitant]
     Dosage: ONE-TWO TABLETS EVERY DAY
     Route: 048
     Dates: start: 20090702, end: 20090814
  178. LORAZEPAM [Concomitant]
     Dosage: 1-2 TABLETS ONCE A DAY AS NEEDED
     Route: 048
     Dates: start: 20091111, end: 20100104
  179. LORAZEPAM [Concomitant]
     Dosage: ONE-TWO TABLETS EVERY DAY
     Route: 048
     Dates: start: 20100409, end: 20100427
  180. AMITRIPTYLINE HCL [Concomitant]
     Route: 048
     Dates: start: 20100901
  181. ALBUTEROL SULFATE HF [Concomitant]
     Dosage: AS NEEDED
     Route: 055
     Dates: start: 20080820, end: 20091005
  182. POTASSIUM CHLORIDE [Concomitant]
     Route: 048
     Dates: start: 20100210
  183. DARVOCET-N 50 [Concomitant]
     Dosage: ONE TABLET FOUR TO SIX HOURS
     Route: 048
     Dates: start: 20090728, end: 20090804
  184. XOPENEX HFA [Concomitant]
     Dosage: AS NEEDED
     Dates: start: 20090203, end: 20090416
  185. DICYCLOMINE [Concomitant]
     Route: 048
     Dates: start: 20100927
  186. CELEXA [Concomitant]
     Dosage: TAKE AFTER DINNER
     Route: 048
     Dates: start: 20090430, end: 20090804
  187. CELEXA [Concomitant]
     Route: 048
     Dates: start: 20090708, end: 20090813
  188. PRAVASTATIN [Concomitant]
     Route: 048
     Dates: start: 20090602, end: 20100507
  189. METHIMAZOLE [Concomitant]
     Route: 048
     Dates: start: 20091207, end: 20091229
  190. INFLUENZA VIRUS VACC [Concomitant]
     Dosage: ONCE
     Dates: start: 20100903, end: 20100903

REACTIONS (14)
  - LABILE BLOOD PRESSURE [None]
  - RENAL IMPAIRMENT [None]
  - DRUG DOSE OMISSION [None]
  - CHRONIC OBSTRUCTIVE PULMONARY DISEASE [None]
  - HEART RATE IRREGULAR [None]
  - CARDIAC FAILURE CONGESTIVE [None]
  - RADIOTHERAPY [None]
  - LOSS OF CONSCIOUSNESS [None]
  - BACK PAIN [None]
  - URINE ODOUR ABNORMAL [None]
  - HEART VALVE INCOMPETENCE [None]
  - HEART VALVE CALCIFICATION [None]
  - CORONARY ARTERIAL STENT INSERTION [None]
  - SYNCOPE [None]
